FAERS Safety Report 16029490 (Version 1)
Quarter: 2019Q1

REPORT INFORMATION
  Report Type: Spontaneous
  Country: US (occurrence: US)
  Receive Date: 20190304
  Receipt Date: 20190304
  Transmission Date: 20190418
  Serious: No
  Sender: FDA-Public Use
  Company Number: US-SA-2019SA059130

PATIENT
  Sex: Female

DRUGS (23)
  1. CEFADROXIL. [Concomitant]
     Active Substance: CEFADROXIL
  2. MONTELUKAST SODIUM. [Concomitant]
     Active Substance: MONTELUKAST SODIUM
  3. MUPIROCIN. [Concomitant]
     Active Substance: MUPIROCIN
  4. PANTOPRAZOLE SODIUM. [Concomitant]
     Active Substance: PANTOPRAZOLE SODIUM
  5. AZITHROMYCIN ANHYDROUS. [Concomitant]
     Active Substance: AZITHROMYCIN ANHYDROUS
  6. RESTASIS [Concomitant]
     Active Substance: CYCLOSPORINE
  7. PROMETHAZINE - CODEINE [CODEINE PHOSPHATE;PROMETHAZINE HYDROCHLORIDE] [Concomitant]
  8. PROVENTIL HFA [SALBUTAMOL] [Concomitant]
  9. VALSARTAN + HIDROCLOROTIAZIDA [Concomitant]
     Active Substance: HYDROCHLOROTHIAZIDE\VALSARTAN
  10. PRALUENT [Suspect]
     Active Substance: ALIROCUMAB
     Dosage: 75 MG, QOW
     Route: 058
  11. LEVAQUIN [Concomitant]
     Active Substance: LEVOFLOXACIN
  12. PROAIR HFA [Concomitant]
     Active Substance: ALBUTEROL SULFATE
  13. CEPHALEXIN [CEFALEXIN] [Concomitant]
     Active Substance: CEPHALEXIN
  14. ACYCLOVIR [ACICLOVIR] [Concomitant]
     Active Substance: ACYCLOVIR
  15. LORAZEPAM. [Concomitant]
     Active Substance: LORAZEPAM
  16. BENZONATATE. [Concomitant]
     Active Substance: BENZONATATE
  17. ASTEPRO [Concomitant]
     Active Substance: AZELASTINE HYDROCHLORIDE
  18. MYRBETRIQ [Concomitant]
     Active Substance: MIRABEGRON
  19. LEVOFLOXACIN. [Concomitant]
     Active Substance: LEVOFLOXACIN
  20. PREDNISONE. [Concomitant]
     Active Substance: PREDNISONE
  21. HYDROCODONE/ACETAMINOPHEN [Concomitant]
     Active Substance: ACETAMINOPHEN\HYDROCODONE
  22. DIAZEPAM. [Concomitant]
     Active Substance: DIAZEPAM
  23. NASONEX [Concomitant]
     Active Substance: MOMETASONE FUROATE

REACTIONS (2)
  - Cough [Unknown]
  - Malaise [Unknown]
